FAERS Safety Report 6610848-0 (Version None)
Quarter: 2010Q1

REPORT INFORMATION
  Report Type: 
  Country: None (occurrence: None)
  Receive Date: 20100219
  Receipt Date: 20100209
  Transmission Date: 20100710
  Serious: Yes (Life-Threatening)
  Sender: FDA-Public Use
  Company Number: 006533

PATIENT
  Age: 63 Year
  Sex: Male

DRUGS (1)
  1. ALPROSTADIL [Suspect]
     Indication: ARTERIAL OCCLUSIVE DISEASE
     Dosage: 120 UG INTRAVENOUS DRIP
     Route: 041
     Dates: start: 20100108, end: 20100121

REACTIONS (2)
  - DIALYSIS [None]
  - PULMONARY OEDEMA [None]
